FAERS Safety Report 5286927-X (Version None)
Quarter: 2007Q1

REPORT INFORMATION
  Report Type: 
  Country: None (occurrence: None)
  Receive Date: 20070329
  Receipt Date: 20070315
  Transmission Date: 20070707
  Serious: Yes (Hospitalization, Disabling)
  Sender: FDA-Public Use
  Company Number: POMP-10874

PATIENT
  Age: 3 Year
  Sex: Male
  Weight: 1409 kg

DRUGS (10)
  1. MYOZYME [Suspect]
     Indication: GLYCOGEN STORAGE DISEASE TYPE II
     Dosage: 20 MG/KG Q2WKS IV
     Route: 042
     Dates: start: 20060815, end: 20061017
  2. MYOZYME [Suspect]
  3. ALPHA-GLUCOSIDASE (HUMAN, RECOMBINANT, CHO CELLS, GENZYME) [Suspect]
     Indication: GLYCOGEN STORAGE DISEASE TYPE II
     Dosage: 20 MG/KG Q2WKS IV
     Route: 042
     Dates: start: 20050629, end: 20060629
  4. ALPHA-GLUCOSIDASE (HUMAN, RECOMBINANT, CHO CELLS, GENZYME) [Suspect]
     Indication: GLYCOGEN STORAGE DISEASE TYPE II
     Dosage: 20 MG/KG Q2WKS IV
     Route: 042
     Dates: start: 20030925, end: 20050609
  5. ALPHA-GLUCOSIDASE (HUMAN, RECOMBINANT, CHO CELLS, GENZYME) [Suspect]
  6. AMBROXOL [Concomitant]
  7. CARDIOLOL [Concomitant]
  8. ISOMIL [Concomitant]
  9. BIOCAL TAB [Concomitant]
  10. ANTIBIOPHILUS [Concomitant]

REACTIONS (32)
  - ALANINE AMINOTRANSFERASE INCREASED [None]
  - ARTHROPOD BITE [None]
  - ASPARTATE AMINOTRANSFERASE INCREASED [None]
  - BAND NEUTROPHIL PERCENTAGE INCREASED [None]
  - BEHCET'S SYNDROME [None]
  - BLISTER [None]
  - BLOOD LACTATE DEHYDROGENASE INCREASED [None]
  - BONE DENSITY DECREASED [None]
  - DECUBITUS ULCER [None]
  - DRY GANGRENE [None]
  - ECZEMA [None]
  - GASTROENTERITIS ROTAVIRUS [None]
  - GLUCAGONOMA [None]
  - IMPAIRED HEALING [None]
  - INFLAMMATION [None]
  - LOBAR PNEUMONIA [None]
  - LOWER RESPIRATORY TRACT INFECTION [None]
  - LYMPHOCYTE PERCENTAGE DECREASED [None]
  - MONOCYTE PERCENTAGE DECREASED [None]
  - NECROSIS [None]
  - NECROSIS ISCHAEMIC [None]
  - POST INFLAMMATORY PIGMENTATION CHANGE [None]
  - PSEUDOMONAS INFECTION [None]
  - PYREXIA [None]
  - SCAB [None]
  - SKIN DISCOLOURATION [None]
  - SKIN LESION [None]
  - SKIN ULCER [None]
  - TOXIC EPIDERMAL NECROLYSIS [None]
  - UPPER RESPIRATORY TRACT INFECTION [None]
  - VASCULITIS [None]
  - VIRAL INFECTION [None]
